FAERS Safety Report 20280401 (Version 2)
Quarter: 2022Q1

REPORT INFORMATION
  Report Type: Spontaneous
  Country: US (occurrence: None)
  Receive Date: 20220103
  Receipt Date: 20220119
  Transmission Date: 20220423
  Serious: Yes (Hospitalization)
  Sender: FDA-Public Use
  Company Number: US-Unichem Pharmaceuticals (USA) Inc-UCM202112-001210

PATIENT
  Age: 55 Year
  Sex: Female

DRUGS (1)
  1. TOPIRAMATE [Suspect]
     Active Substance: TOPIRAMATE
     Indication: Myoclonus
     Dosage: UNKNOWN

REACTIONS (6)
  - Hypernatraemia [Recovering/Resolving]
  - Osmotic demyelination syndrome [Recovering/Resolving]
  - Renal tubular acidosis [Recovering/Resolving]
  - Hypokalaemia [Recovered/Resolved]
  - Hypotension [Recovering/Resolving]
  - Product use in unapproved indication [Unknown]
